FAERS Safety Report 6091351-6 (Version None)
Quarter: 2009Q1

REPORT INFORMATION
  Report Type: 
  Country: None (occurrence: None)
  Receive Date: 20090219
  Receipt Date: 20090219
  Transmission Date: 20090719
  Serious: Yes (Other)
  Sender: FDA-Public Use
  Company Number: None

PATIENT
  Sex: Female
  Weight: 61.2356 kg

DRUGS (1)
  1. ACTONEL [Suspect]
     Indication: OSTEOPENIA
     Dosage: 75MG TAB 2 MONTHLY PO
     Route: 048
     Dates: start: 20090201

REACTIONS (6)
  - EYE IRRITATION [None]
  - EYE PAIN [None]
  - EYELID PTOSIS [None]
  - MIOSIS [None]
  - PHOTOPHOBIA [None]
  - VISION BLURRED [None]
